FAERS Safety Report 10017592 (Version 1)
Quarter: 2014Q1

REPORT INFORMATION
  Report Type: Spontaneous
  Country: US (occurrence: US)
  Receive Date: 20140318
  Receipt Date: 20140318
  Transmission Date: 20141002
  Serious: Yes (Other)
  Sender: FDA-Public Use
  Company Number: US-BAYER-2014-035388

PATIENT
  Age: 57 Year
  Sex: Female
  Weight: 75 kg

DRUGS (8)
  1. ALEVE CAPLET [Suspect]
     Indication: PAIN
     Dosage: UNK UNK, PRN
     Route: 048
     Dates: start: 201211, end: 20140302
  2. ECOTRIN [Concomitant]
  3. DONNATAL [Concomitant]
  4. NEXIUM [Concomitant]
  5. TOPROL [Concomitant]
  6. BENICAR [Concomitant]
  7. COLESTID [Concomitant]
  8. FLUVASTATIN [Concomitant]

REACTIONS (57)
  - Hypersensitivity [Recovered/Resolved]
  - Paraesthesia [Recovered/Resolved]
  - Rash [Recovered/Resolved]
  - Pruritus [Recovered/Resolved]
  - Skin irritation [Recovered/Resolved]
  - Erythema [Recovered/Resolved]
  - Swelling face [Recovered/Resolved]
  - Skin fissures [Recovered/Resolved]
  - Oedema mouth [Recovered/Resolved]
  - Lip swelling [Recovered/Resolved]
  - Lip pruritus [Recovered/Resolved]
  - Chapped lips [Recovered/Resolved]
  - Cheilitis [Recovered/Resolved]
  - Lip blister [Recovered/Resolved]
  - Burning sensation [Recovered/Resolved]
  - Oral pruritus [Recovered/Resolved]
  - Stomatitis [Recovered/Resolved]
  - Oral mucosal blistering [Recovered/Resolved]
  - Oral mucosal erythema [Recovered/Resolved]
  - Hypersensitivity [Recovered/Resolved]
  - Paraesthesia [Recovered/Resolved]
  - Rash [Recovered/Resolved]
  - Pruritus [Recovered/Resolved]
  - Skin irritation [Recovered/Resolved]
  - Erythema [Recovered/Resolved]
  - Swelling face [Recovered/Resolved]
  - Skin fissures [Recovered/Resolved]
  - Oedema mouth [Recovered/Resolved]
  - Lip swelling [Recovered/Resolved]
  - Lip pruritus [Recovered/Resolved]
  - Chapped lips [Recovered/Resolved]
  - Cheilitis [Recovered/Resolved]
  - Lip blister [Recovered/Resolved]
  - Burning sensation [Recovered/Resolved]
  - Oral pruritus [Recovered/Resolved]
  - Stomatitis [Recovered/Resolved]
  - Oral mucosal blistering [Recovered/Resolved]
  - Oral mucosal erythema [Recovered/Resolved]
  - Hypersensitivity [Not Recovered/Not Resolved]
  - Paraesthesia [Not Recovered/Not Resolved]
  - Rash [Not Recovered/Not Resolved]
  - Pruritus [Not Recovered/Not Resolved]
  - Skin irritation [Not Recovered/Not Resolved]
  - Erythema [Not Recovered/Not Resolved]
  - Swelling face [Not Recovered/Not Resolved]
  - Skin fissures [Not Recovered/Not Resolved]
  - Oedema mouth [Not Recovered/Not Resolved]
  - Lip swelling [Not Recovered/Not Resolved]
  - Lip pruritus [Not Recovered/Not Resolved]
  - Chapped lips [Not Recovered/Not Resolved]
  - Cheilitis [Not Recovered/Not Resolved]
  - Lip blister [Not Recovered/Not Resolved]
  - Burning sensation [Not Recovered/Not Resolved]
  - Oral pruritus [Not Recovered/Not Resolved]
  - Stomatitis [Not Recovered/Not Resolved]
  - Oral mucosal blistering [Not Recovered/Not Resolved]
  - Oral mucosal erythema [Not Recovered/Not Resolved]
